FAERS Safety Report 7768218-8 (Version None)
Quarter: 2011Q3

REPORT INFORMATION
  Report Type: 
  Country: None (occurrence: None)
  Receive Date: 20110922
  Receipt Date: 20110922
  Transmission Date: 20111222
  Serious: Yes (Other)
  Sender: FDA-Public Use
  Company Number: None

PATIENT
  Age: 26 Year
  Sex: Male
  Weight: 75 kg

DRUGS (6)
  1. CENTRUM [Concomitant]
     Route: 048
  2. CETIRIZINE HCL [Concomitant]
     Route: 048
  3. BUPROPION HYDROCHLORIDE [Concomitant]
     Route: 048
  4. VITAMIN D [Concomitant]
     Route: 048
  5. VIIBRYD [Suspect]
     Indication: DEPRESSION
     Dosage: 10MG
     Route: 048
     Dates: start: 20110601, end: 20110615
  6. FLONASE [Concomitant]

REACTIONS (1)
  - EJACULATION DELAYED [None]
